FAERS Safety Report 9475251 (Version 1)
Quarter: 2013Q3

REPORT INFORMATION
  Report Type: Spontaneous
  Country: US (occurrence: None)
  Receive Date: 20130822
  Receipt Date: 20130822
  Transmission Date: 20140515
  Serious: Yes (Life-Threatening, Disabling, Other)
  Sender: FDA-Public Use
  Company Number: None

PATIENT
  Sex: Male
  Weight: 101.15 kg

DRUGS (11)
  1. WARFARIN [Suspect]
     Indication: CARDIAC FIBRILLATION
     Route: 048
     Dates: start: 20100621
  2. METOPROLOL [Concomitant]
  3. FLECAINIDE [Concomitant]
  4. LEVOTHYROXINE [Concomitant]
  5. LISINPRIL [Concomitant]
  6. PD CHLORIDE [Concomitant]
  7. HYDROXYZINE [Concomitant]
  8. PAMOATE [Concomitant]
  9. CARDIO VITAMINS [Concomitant]
  10. JUICE PLUS [Concomitant]
  11. ENSURE [Concomitant]

REACTIONS (6)
  - Memory impairment [None]
  - Confusional state [None]
  - Agitation [None]
  - Poor personal hygiene [None]
  - Impaired work ability [None]
  - Activities of daily living impaired [None]
